FAERS Safety Report 23931400 (Version 1)
Quarter: 2024Q2

REPORT INFORMATION
  Report Type: Spontaneous
  Country: US (occurrence: US)
  Receive Date: 20240603
  Receipt Date: 20240603
  Transmission Date: 20240716
  Serious: No
  Sender: FDA-Public Use
  Company Number: US-TAKEDA-2024TUS053530

PATIENT
  Sex: Female
  Weight: 52 kg

DRUGS (2)
  1. FRUZAQLA [Suspect]
     Active Substance: FRUQUINTINIB
     Indication: Colorectal cancer stage IV
     Dosage: 5 MILLIGRAM
     Route: 065
     Dates: start: 202402
  2. OXYCODONE [Concomitant]
     Active Substance: OXYCODONE\OXYCODONE HYDROCHLORIDE
     Dosage: UNK
     Route: 065

REACTIONS (3)
  - Pain [Unknown]
  - Abdominal pain [Unknown]
  - Fatigue [Unknown]
